FAERS Safety Report 22007059 (Version 4)
Quarter: 2023Q2

REPORT INFORMATION
  Report Type: Spontaneous
  Country: US (occurrence: US)
  Receive Date: 20230217
  Receipt Date: 20230511
  Transmission Date: 20230721
  Serious: Yes (Other)
  Sender: FDA-Public Use
  Company Number: US-Blueprint Medicines Corporation-836

PATIENT
  Age: 76 Year
  Sex: Female

DRUGS (2)
  1. AYVAKIT [Suspect]
     Active Substance: AVAPRITINIB
     Indication: Haematopoietic neoplasm
     Route: 065
     Dates: start: 20220418
  2. AYVAKIT [Suspect]
     Active Substance: AVAPRITINIB
     Route: 065
     Dates: start: 20220418

REACTIONS (11)
  - Head injury [Unknown]
  - Eye injury [Unknown]
  - Cerebral haemorrhage [Recovered/Resolved]
  - Fatigue [Unknown]
  - Magnetic resonance imaging head abnormal [Unknown]
  - White blood cell count decreased [Unknown]
  - Eye contusion [Unknown]
  - Artificial crown procedure [Unknown]
  - Fall [Unknown]
  - Memory impairment [Unknown]
  - Tryptase [Unknown]

NARRATIVE: CASE EVENT DATE: 20230210
